FAERS Safety Report 12074698 (Version 1)
Quarter: 2016Q1

REPORT INFORMATION
  Report Type: Spontaneous
  Country: GR (occurrence: GR)
  Receive Date: 20160212
  Receipt Date: 20160212
  Transmission Date: 20160526
  Serious: Yes (Other)
  Sender: FDA-Public Use
  Company Number: GR-APOPHARMA-2016AP006346

PATIENT
  Age: 41 Year
  Sex: Male
  Weight: 70 kg

DRUGS (6)
  1. JANUVIA [Concomitant]
     Active Substance: SITAGLIPTIN PHOSPHATE
     Indication: PRODUCT USED FOR UNKNOWN INDICATION
     Dosage: UNK
     Route: 065
     Dates: start: 201507
  2. FERRIPROX [Suspect]
     Active Substance: DEFERIPRONE
     Indication: THALASSAEMIA BETA
     Dosage: 7000 MG, QD
     Route: 048
     Dates: end: 20151204
  3. FERRIPROX [Suspect]
     Active Substance: DEFERIPRONE
     Indication: IRON OVERLOAD
  4. XARELTO [Concomitant]
     Active Substance: RIVAROXABAN
     Indication: PRODUCT USED FOR UNKNOWN INDICATION
     Dosage: UNK
     Route: 065
     Dates: start: 201507
  5. EXJADE [Concomitant]
     Active Substance: DEFERASIROX
     Indication: PRODUCT USED FOR UNKNOWN INDICATION
     Dosage: UNK
     Route: 065
     Dates: start: 201512
  6. GLUCOPHAGE [Concomitant]
     Active Substance: METFORMIN HYDROCHLORIDE
     Indication: PRODUCT USED FOR UNKNOWN INDICATION
     Dosage: 850 MG, UNKNOWN
     Route: 065
     Dates: start: 201507

REACTIONS (4)
  - Iron binding capacity total decreased [Recovering/Resolving]
  - Asthenia [Recovering/Resolving]
  - Serum ferritin increased [Recovering/Resolving]
  - Fatigue [Recovering/Resolving]

NARRATIVE: CASE EVENT DATE: 2015
